FAERS Safety Report 22520672 (Version 1)
Quarter: 2023Q2

REPORT INFORMATION
  Report Type: Spontaneous
  Country: US (occurrence: None)
  Receive Date: 20230604
  Receipt Date: 20230604
  Transmission Date: 20230722
  Serious: Yes (Other)
  Sender: FDA-Public Use
  Company Number: None

PATIENT
  Age: 52 Year
  Sex: Male
  Weight: 80.1 kg

DRUGS (1)
  1. OZEMPIC [Suspect]
     Active Substance: SEMAGLUTIDE
     Indication: Blood glucose increased
     Dates: start: 20230530, end: 20230530

REACTIONS (8)
  - Gastric disorder [None]
  - Dyspepsia [None]
  - Oropharyngeal pain [None]
  - Abdominal pain upper [None]
  - Odynophagia [None]
  - Thirst [None]
  - Dry throat [None]
  - Vision blurred [None]

NARRATIVE: CASE EVENT DATE: 20230530
